FAERS Safety Report 6828832-0 (Version None)
Quarter: 2010Q3

REPORT INFORMATION
  Report Type: 
  Country: None (occurrence: None)
  Receive Date: 20100706
  Receipt Date: 20100629
  Transmission Date: 20110219
  Serious: Yes (Disabling, Other)
  Sender: FDA-Public Use
  Company Number: 2010MA000379

PATIENT
  Age: 49 Year
  Sex: Female

DRUGS (4)
  1. FLUOXETINE [Suspect]
     Indication: DEPRESSION
     Dosage: 20 MG; QD, PO
     Route: 048
     Dates: start: 20000101
  2. ALLI [Concomitant]
  3. MELOXICAM [Concomitant]
  4. PREV MEDS [Concomitant]

REACTIONS (4)
  - CRYING [None]
  - DEPRESSED MOOD [None]
  - HOT FLUSH [None]
  - MENOPAUSAL SYMPTOMS [None]
